FAERS Safety Report 5970313-0 (Version None)
Quarter: 2008Q4

REPORT INFORMATION
  Report Type: 
  Country: None (occurrence: None)
  Receive Date: 20081126
  Receipt Date: 20081017
  Transmission Date: 20090506
  Serious: No
  Sender: FDA-Public Use
  Company Number: US-ABBOTT-08P-163-0482941-00

PATIENT
  Sex: Female

DRUGS (3)
  1. SIMCOR [Suspect]
     Indication: BLOOD CHOLESTEROL INCREASED
     Dosage: ONE ORALLY AT NIGHT
     Route: 048
     Dates: start: 20081003, end: 20081010
  2. TELMISARTAN [Concomitant]
     Indication: DRUG USE FOR UNKNOWN INDICATION
  3. BIRTH CONTROL PILL [Concomitant]
     Indication: CONTRACEPTION
     Route: 048

REACTIONS (1)
  - BACK PAIN [None]
